FAERS Safety Report 4581212-3 (Version None)
Quarter: 2005Q1

REPORT INFORMATION
  Report Type: 
  Country: None (occurrence: None)
  Receive Date: 20050214
  Receipt Date: 20040831
  Transmission Date: 20050727
  Serious: No
  Sender: FDA-Public Use
  Company Number: US-GLAXOSMITHKLINE-A0524245A

PATIENT
  Age: 14 Year
  Sex: Female

DRUGS (3)
  1. LAMICTAL [Suspect]
     Dosage: 25MG TWICE PER DAY
     Route: 048
     Dates: start: 20040501, end: 20040520
  2. DEPAKOTE [Concomitant]
     Dosage: 250MG TWICE PER DAY
     Route: 048
  3. LORAZEPAM [Concomitant]
     Dosage: .5MG PER DAY
     Route: 048

REACTIONS (4)
  - ALTERED VISUAL DEPTH PERCEPTION [None]
  - ANXIETY [None]
  - GAIT DISTURBANCE [None]
  - MEMORY IMPAIRMENT [None]
